FAERS Safety Report 24254925 (Version 1)
Quarter: 2024Q3

REPORT INFORMATION
  Report Type: Spontaneous
  Country: CN (occurrence: CN)
  Receive Date: 20240827
  Receipt Date: 20240827
  Transmission Date: 20241017
  Serious: Yes (Hospitalization)
  Sender: ELI LILLY AND CO
  Company Number: CN-ELI_LILLY_AND_COMPANY-CN202408011325

PATIENT
  Age: 44 Year
  Sex: Female

DRUGS (2)
  1. PEMETREXED [Suspect]
     Active Substance: PEMETREXED
     Indication: Non-small cell lung cancer
     Dosage: 800 MG, CYCLICAL
     Route: 065
     Dates: start: 201908, end: 202001
  2. CARBOPLATIN [Suspect]
     Active Substance: CARBOPLATIN
     Indication: Non-small cell lung cancer
     Dosage: UNK UNK, CYCLICAL
     Route: 065
     Dates: start: 201908, end: 202001

REACTIONS (9)
  - Cardiac valve disease [Unknown]
  - Left ventricular dysfunction [Unknown]
  - Aortic valve incompetence [Unknown]
  - Mitral valve incompetence [Unknown]
  - Tricuspid valve incompetence [Unknown]
  - Myocardial ischaemia [Unknown]
  - Sinus tachycardia [Recovered/Resolved]
  - Sinus arrhythmia [Recovered/Resolved]
  - Supraventricular extrasystoles [Unknown]

NARRATIVE: CASE EVENT DATE: 20200101
